FAERS Safety Report 7911168-4 (Version None)
Quarter: 2011Q4

REPORT INFORMATION
  Report Type: 
  Country: None (occurrence: None)
  Receive Date: 20111110
  Receipt Date: 20111110
  Transmission Date: 20120403
  Serious: Yes (Other)
  Sender: FDA-Public Use
  Company Number: None

PATIENT
  Age: 30 Year
  Sex: Female

DRUGS (2)
  1. DECADRON [Concomitant]
  2. DEPO-MEDROL [Suspect]

REACTIONS (4)
  - INJECTION SITE SWELLING [None]
  - STAPHYLOCOCCUS TEST POSITIVE [None]
  - INJECTION SITE ERYTHEMA [None]
  - INJECTION SITE WARMTH [None]
